FAERS Safety Report 23212535 (Version 1)
Quarter: 2023Q4

REPORT INFORMATION
  Report Type: Spontaneous
  Country: IT (occurrence: IT)
  Receive Date: 20231121
  Receipt Date: 20231121
  Transmission Date: 20240109
  Serious: Yes (Death, Other)
  Sender: FDA-Public Use
  Company Number: IT-PFIZER INC-2019096128

PATIENT
  Sex: Male

DRUGS (17)
  1. ADRIAMYCIN [Suspect]
     Active Substance: DOXORUBICIN HYDROCHLORIDE
     Indication: B-cell lymphoma
     Dosage: UNK (4 COURSES OF BACOP)
     Route: 065
  2. BLEOMYCIN [Suspect]
     Active Substance: BLEOMYCIN SULFATE
     Indication: B-cell lymphoma
     Dosage: UNK (4 COURSES OF BACOP)
     Route: 065
  3. CYTARABINE [Suspect]
     Active Substance: CYTARABINE
     Indication: B-cell lymphoma
     Dosage: UNK
     Route: 065
  4. CYTARABINE [Suspect]
     Active Substance: CYTARABINE
     Dosage: UNK (THREE COURSES OF IVA REGIMEN)
     Route: 065
  5. CHLORAMBUCIL [Suspect]
     Active Substance: CHLORAMBUCIL
     Indication: B-cell lymphoma
     Dosage: UNK
     Route: 065
  6. CYCLOPHOSPHAMIDE [Suspect]
     Active Substance: CYCLOPHOSPHAMIDE
     Indication: B-cell lymphoma
     Dosage: UNK (4 COURSES OF C-MOPP)
     Route: 065
  7. CYCLOPHOSPHAMIDE [Suspect]
     Active Substance: CYCLOPHOSPHAMIDE
     Dosage: UNK (8 COURSES)
     Route: 065
  8. ETOPOSIDE [Suspect]
     Active Substance: ETOPOSIDE
     Indication: Product used for unknown indication
     Dosage: UNK (THREE COURSES OF IVA REGIMEN)
     Route: 065
  9. IDARUBICIN HYDROCHLORIDE [Suspect]
     Active Substance: IDARUBICIN HYDROCHLORIDE
     Indication: Product used for unknown indication
     Dosage: UNK (THREE COURSES OF IVA REGIMEN)
     Route: 065
  10. MITOXANTRONE [Suspect]
     Active Substance: MITOXANTRONE HYDROCHLORIDE
     Indication: B-cell lymphoma
     Dosage: UNK (FOUR COURSES)
     Route: 065
  11. MECHLORETHAMINE HYDROCHLORIDE [Suspect]
     Active Substance: MECHLORETHAMINE HYDROCHLORIDE
     Indication: Product used for unknown indication
     Dosage: UNK (4 COURSES)
     Route: 065
  12. PREDNISOLONE ACETATE [Suspect]
     Active Substance: PREDNISOLONE ACETATE
     Indication: B-cell lymphoma
     Dosage: UNK (8 COURSES)
     Route: 065
  13. PREDNISONE [Suspect]
     Active Substance: PREDNISONE
     Dosage: UNK (4 COURSES OF BACOP)
     Route: 065
  14. PREDNISONE [Suspect]
     Active Substance: PREDNISONE
     Indication: B-cell lymphoma
     Dosage: UNK (4 COURSES OF C-MOPP)
     Route: 065
  15. PROCARBAZINE [Suspect]
     Active Substance: PROCARBAZINE
     Indication: B-cell lymphoma
     Dosage: UNK, (4 COURSES OF C-MOPP)
     Route: 065
  16. VINCRISTINE SULFATE [Suspect]
     Active Substance: VINCRISTINE SULFATE
     Indication: B-cell lymphoma
     Dosage: UNK (4 COURSES OF BACOP)
     Route: 065
  17. VINCRISTINE SULFATE [Suspect]
     Active Substance: VINCRISTINE SULFATE
     Dosage: UNK (4 COURSES OF C-MOPP)
     Route: 065

REACTIONS (3)
  - Splenic rupture [Fatal]
  - Epstein-Barr virus associated lymphoma [Fatal]
  - Second primary malignancy [Fatal]
